FAERS Safety Report 5243256-8 (Version None)
Quarter: 2007Q1

REPORT INFORMATION
  Report Type: 
  Country: None (occurrence: None)
  Receive Date: 20070221
  Receipt Date: 20070209
  Transmission Date: 20070707
  Serious: Yes (Other)
  Sender: FDA-Public Use
  Company Number: US-PFIZER INC-2007011313

PATIENT
  Sex: Male
  Weight: 74 kg

DRUGS (13)
  1. UNASYN [Suspect]
     Indication: WOUND SEPSIS
     Dates: start: 20070205, end: 20070208
  2. TRAZODONE HCL [Concomitant]
  3. COUMADIN [Concomitant]
  4. AMIODARONE HCL [Concomitant]
  5. LOPRESSOR [Concomitant]
  6. TORADOL [Concomitant]
  7. SENSIPAR [Concomitant]
  8. PROCRIT [Concomitant]
     Route: 051
  9. NEXIUM [Concomitant]
  10. IBUPROFEN [Concomitant]
  11. VITAMIN CAP [Concomitant]
  12. NEPHROCAPS [Concomitant]
  13. ALL OTHER THERAPEUTIC PRODUCTS [Concomitant]

REACTIONS (1)
  - INTERNATIONAL NORMALISED RATIO INCREASED [None]
